FAERS Safety Report 10013472 (Version 2)
Quarter: 2014Q1

REPORT INFORMATION
  Report Type: Spontaneous
  Country: US (occurrence: US)
  Receive Date: 20140314
  Receipt Date: 20140327
  Transmission Date: 20141002
  Serious: Yes (Death)
  Sender: FDA-Public Use
  Company Number: US-B.I. PHARMACEUTICALS,INC./RIDGEFIELD-2014-BI-11076BP

PATIENT
  Age: 70 Year
  Sex: Male

DRUGS (2)
  1. SPIRIVA [Suspect]
     Indication: LUNG NEOPLASM MALIGNANT
     Route: 055
     Dates: start: 201301
  2. MEDICATION NOT FURTHER SPECIFIED [Concomitant]
     Route: 065

REACTIONS (2)
  - Lung neoplasm malignant [Fatal]
  - Off label use [Unknown]
